FAERS Safety Report 5020729-4 (Version None)
Quarter: 2006Q2

REPORT INFORMATION
  Report Type: 
  Country: None (occurrence: None)
  Receive Date: 20060601
  Receipt Date: 20060517
  Transmission Date: 20061013
  Serious: Yes (Hospitalization)
  Sender: FDA-Public Use
  Company Number: 2006RR-02345

PATIENT
  Age: 60 Year
  Sex: Female

DRUGS (3)
  1. TRIMETHOPRIM [Suspect]
     Indication: URINARY TRACT INFECTION
  2. METRONIDAZOLE [Suspect]
     Indication: URINARY TRACT INFECTION
  3. CEPHALEXIN [Suspect]

REACTIONS (12)
  - ABDOMINAL PAIN [None]
  - DEEP VEIN THROMBOSIS [None]
  - HAEMATOMA [None]
  - HAEMOGLOBIN DECREASED [None]
  - HYPOVOLAEMIC SHOCK [None]
  - INTERNATIONAL NORMALISED RATIO INCREASED [None]
  - MUSCLE HAEMORRHAGE [None]
  - PAIN [None]
  - PYREXIA [None]
  - RETROPERITONEAL HAEMATOMA [None]
  - URETERAL DISORDER [None]
  - WHITE BLOOD CELL COUNT INCREASED [None]
